FAERS Safety Report 6134814-7 (Version None)
Quarter: 2009Q1

REPORT INFORMATION
  Report Type: 
  Country: None (occurrence: None)
  Receive Date: 20090327
  Receipt Date: 20090316
  Transmission Date: 20090719
  Serious: Yes (Other)
  Sender: FDA-Public Use
  Company Number: PHHY2009AU10161

PATIENT
  Sex: Male

DRUGS (5)
  1. EXFORGE [Suspect]
  2. DIOVAN [Suspect]
     Dosage: 480 MG DAILY
  3. LERCANIDIPINE [Suspect]
     Dosage: 20 MG, BID
  4. ALISKIREN [Concomitant]
     Dosage: 300 MG DAILY
  5. PRAZSOIN HCL [Concomitant]
     Dosage: 1 MG, BID

REACTIONS (6)
  - CHEST PAIN [None]
  - LOCAL SWELLING [None]
  - OEDEMA [None]
  - OEDEMA PERIPHERAL [None]
  - OVERDOSE [None]
  - TACHYCARDIA [None]
